FAERS Safety Report 21451643 (Version 1)
Quarter: 2022Q4

REPORT INFORMATION
  Report Type: Spontaneous
  Country: US (occurrence: None)
  Receive Date: 20221012
  Receipt Date: 20221012
  Transmission Date: 20230113
  Serious: Yes (Disabling)
  Sender: FDA-Public Use
  Company Number: None

PATIENT
  Age: 51 Year
  Sex: Female
  Weight: 81.45 kg

DRUGS (28)
  1. ANASTROZOLE [Suspect]
     Active Substance: ANASTROZOLE
     Indication: Breast cancer
     Dosage: FREQUENCY : DAILY;?
     Route: 048
     Dates: start: 20210923
  2. GABAPENTIN [Concomitant]
     Active Substance: GABAPENTIN
  3. ASPIRIN [Concomitant]
     Active Substance: ASPIRIN
  4. TYLENOL [Concomitant]
     Active Substance: ACETAMINOPHEN
  5. BROMELAINS [Concomitant]
     Active Substance: BROMELAINS
  6. VITAMIN D3 [Concomitant]
     Active Substance: CHOLECALCIFEROL
  7. JWH-018 [Concomitant]
     Active Substance: JWH-018
  8. MELATONIN [Concomitant]
     Active Substance: MELATONIN
  9. coriolus [Concomitant]
  10. EPA/DHA [Concomitant]
  11. MAGNESIUM GLYCINATE [Concomitant]
     Active Substance: MAGNESIUM GLYCINATE
  12. CURCUMIN [Concomitant]
     Active Substance: CURCUMIN
  13. PROBIOTICS NOS [Concomitant]
     Active Substance: PROBIOTICS NOS
  14. B12 methylcobalamine [Concomitant]
  15. DIETARY SUPPLEMENT [Concomitant]
     Active Substance: DIETARY SUPPLEMENT
  16. CALCIUM CITRATE MALATE [Concomitant]
     Active Substance: CALCIUM CITRATE MALATE
  17. QUERCETIN [Concomitant]
     Active Substance: QUERCETIN
  18. UBIQUINOL [Concomitant]
     Active Substance: UBIQUINOL
  19. ZINC PICOLINATE [Concomitant]
     Active Substance: ZINC PICOLINATE
  20. organic tart cherry 10:1 extract [Concomitant]
  21. DIETARY SUPPLEMENT\HERBALS\INDIAN FRANKINCENSE [Concomitant]
     Active Substance: DIETARY SUPPLEMENT\HERBALS\INDIAN FRANKINCENSE
  22. DIETARY SUPPLEMENT [Concomitant]
     Active Substance: DIETARY SUPPLEMENT
  23. ALPHA LIPOIC ACID [Concomitant]
     Active Substance: .ALPHA.-LIPOIC ACID
  24. AR-Encap [Concomitant]
  25. Vinco^s liposomal iodine [Concomitant]
  26. Neurocalm PM [Concomitant]
  27. Dmannose [Concomitant]
  28. pectasol-c (modified citrus pectin) [Concomitant]

REACTIONS (16)
  - Plantar fasciitis [None]
  - Arthralgia [None]
  - Pain in extremity [None]
  - Pain in extremity [None]
  - Arthralgia [None]
  - Arthralgia [None]
  - Arthralgia [None]
  - Back pain [None]
  - Asthenia [None]
  - Peripheral swelling [None]
  - Fatigue [None]
  - Depressed level of consciousness [None]
  - Irritability [None]
  - Decreased appetite [None]
  - Cough [None]
  - Oropharyngeal pain [None]

NARRATIVE: CASE EVENT DATE: 20210929
